FAERS Safety Report 5698604-1 (Version None)
Quarter: 2008Q2

REPORT INFORMATION
  Report Type: 
  Country: None (occurrence: None)
  Receive Date: 20080408
  Receipt Date: 20061114
  Transmission Date: 20081010
  Serious: No
  Sender: FDA-Public Use
  Company Number: US-BAYER-US-2006-035509

PATIENT
  Age: 41 Year
  Sex: Female
  Weight: 91 kg

DRUGS (4)
  1. CLIMARA [Suspect]
     Indication: MENOPAUSAL SYMPTOMS
     Route: 062
     Dates: start: 20061024, end: 20061113
  2. SINGULAIR [Concomitant]
  3. PREVACID [Concomitant]
  4. IRON [Concomitant]

REACTIONS (1)
  - APPLICATION SITE RASH [None]
